FAERS Safety Report 24624638 (Version 1)
Quarter: 2024Q4

REPORT INFORMATION
  Report Type: Report from Study
  Country: US (occurrence: US)
  Receive Date: 20241115
  Receipt Date: 20241115
  Transmission Date: 20250115
  Serious: Yes (Other)
  Sender: INCYTE
  Company Number: US-EVENT-000448

PATIENT

DRUGS (1)
  1. JAKAFI [Suspect]
     Active Substance: RUXOLITINIB
     Indication: Myelofibrosis
     Dosage: TWICE A DAY
     Route: 065

REACTIONS (2)
  - Bowen^s disease [Unknown]
  - Anal polyp [Unknown]

NARRATIVE: CASE EVENT DATE: 20240501
